FAERS Safety Report 4614654-8 (Version None)
Quarter: 2005Q2

REPORT INFORMATION
  Report Type: 
  Country: None (occurrence: None)
  Receive Date: 20050311
  Receipt Date: 20041129
  Transmission Date: 20051028
  Serious: No
  Sender: FDA-Public Use
  Company Number: 2004-BP-12494BP

PATIENT
  Age: 81 Year
  Sex: Female

DRUGS (2)
  1. SPIRIVA [Suspect]
     Indication: CHRONIC OBSTRUCTIVE PULMONARY DISEASE
     Dosage: 18 MCG (18 MCG), IH
     Route: 055
     Dates: start: 20040715
  2. SEREVENT DISKUS (SALMETEROL XINAFOATE) [Concomitant]

REACTIONS (3)
  - DRY MOUTH [None]
  - DYSPNOEA EXERTIONAL [None]
  - FATIGUE [None]
